FAERS Safety Report 14709015 (Version 1)
Quarter: 2018Q2

REPORT INFORMATION
  Report Type: Spontaneous
  Country: US (occurrence: US)
  Receive Date: 20180403
  Receipt Date: 20180403
  Transmission Date: 20180711
  Serious: Yes (Hospitalization)
  Sender: FDA-Public Use
  Company Number: US-ELI_LILLY_AND_COMPANY-US201803011468

PATIENT
  Sex: Female

DRUGS (2)
  1. FORTEO [Suspect]
     Active Substance: TERIPARATIDE
     Indication: DELAYED SPINAL FUSION
     Dosage: 20 UG, UNKNOWN
     Route: 058
     Dates: start: 201801
  2. FORTEO [Suspect]
     Active Substance: TERIPARATIDE
     Indication: BONE DENSITY DECREASED
     Dosage: 20 UG, UNKNOWN
     Route: 058

REACTIONS (1)
  - Cellulitis [Recovered/Resolved]
